FAERS Safety Report 8789582 (Version 1)
Quarter: 2012Q4

REPORT INFORMATION
  Report Type: Spontaneous
  Country: None (occurrence: None)
  Receive Date: 20120905
  Receipt Date: 20120905
  Transmission Date: 20130627
  Serious: Yes (Other)
  Sender: FDA-Public Use
  Company Number: 2012MA010624

PATIENT
  Sex: Male

DRUGS (5)
  1. RAMIPRIL [Suspect]
     Route: 048
  2. ACETYSALICYLIC [Concomitant]
  3. AMLODIPINE [Concomitant]
  4. CLOPIDOGREL [Concomitant]
  5. SPIRONOLACTONE [Suspect]

REACTIONS (1)
  - Vision blurred [None]
